FAERS Safety Report 23294290 (Version 1)
Quarter: 2023Q4

REPORT INFORMATION
  Report Type: Spontaneous
  Country: None (occurrence: US)
  Receive Date: 20231213
  Receipt Date: 20231213
  Transmission Date: 20240110
  Serious: No
  Sender: FDA-Public Use
  Company Number: US-Harrow Eye-2149330

PATIENT
  Sex: Female

DRUGS (8)
  1. CIPROFLOXACIN [Suspect]
     Active Substance: CIPROFLOXACIN
     Indication: Product used for unknown indication
  2. MOXIFLOXACIN [Suspect]
     Active Substance: MOXIFLOXACIN
  3. TOBRAMYCIN [Suspect]
     Active Substance: TOBRAMYCIN
  4. CLOFAZIMINE [Suspect]
     Active Substance: CLOFAZIMINE
  5. CLARITHROMYCIN [Suspect]
     Active Substance: CLARITHROMYCIN
  6. LINEZOLID [Suspect]
     Active Substance: LINEZOLID
  7. CEFOXITIN [Suspect]
     Active Substance: CEFOXITIN SODIUM
  8. OMADACYCLINE [Suspect]
     Active Substance: OMADACYCLINE

REACTIONS (1)
  - Drug resistance [Unknown]
